FAERS Safety Report 8340437-1 (Version None)
Quarter: 2012Q2

REPORT INFORMATION
  Report Type: 
  Country: None (occurrence: None)
  Receive Date: 20120507
  Receipt Date: 20120507
  Transmission Date: 20120825
  Serious: Yes (Other)
  Sender: FDA-Public Use
  Company Number: None

PATIENT
  Age: 33 Year
  Sex: Female
  Weight: 45.359 kg

DRUGS (1)
  1. MIRENA [Suspect]
     Indication: CONTRACEPTION
     Dates: start: 20110501, end: 20111101

REACTIONS (8)
  - LIMB ASYMMETRY [None]
  - SJOGREN'S SYNDROME [None]
  - GAIT DISTURBANCE [None]
  - ANTINUCLEAR ANTIBODY POSITIVE [None]
  - PAIN [None]
  - CHEMICAL POISONING [None]
  - OSTEONECROSIS [None]
  - AUTOIMMUNE DISORDER [None]
